FAERS Safety Report 5626625-3 (Version None)
Quarter: 2008Q1

REPORT INFORMATION
  Report Type: 
  Country: None (occurrence: None)
  Receive Date: 20080214
  Receipt Date: 20080201
  Transmission Date: 20080703
  Serious: Yes (Hospitalization, Other)
  Sender: FDA-Public Use
  Company Number: US-ELI_LILLY_AND_COMPANY-US200802000250

PATIENT
  Age: 38 Year
  Sex: Male

DRUGS (5)
  1. CYMBALTA [Suspect]
     Dosage: 80 MG, DAILY (1/D)
     Dates: start: 20071001, end: 20080101
  2. LISINOPRIL [Concomitant]
     Indication: HYPERTENSION
     Dates: end: 20080101
  3. WELLBUTRIN [Concomitant]
     Indication: DEPRESSION
     Dosage: 150 MG, UNK
  4. WELLBUTRIN [Concomitant]
     Dosage: 100 MG, UNK
  5. MUSCLE RELAXANTS [Concomitant]

REACTIONS (3)
  - ALANINE AMINOTRANSFERASE INCREASED [None]
  - ASPARTATE AMINOTRANSFERASE INCREASED [None]
  - CHEST PAIN [None]
